FAERS Safety Report 14146388 (Version 6)
Quarter: 2018Q1

REPORT INFORMATION
  Report Type: Spontaneous
  Country: JP (occurrence: JP)
  Receive Date: 20171031
  Receipt Date: 20180320
  Transmission Date: 20180508
  Serious: Yes (Hospitalization, Other)
  Sender: FDA-Public Use
  Company Number: JP-PFIZER INC-2017462863

PATIENT
  Age: 63 Year
  Sex: Male
  Weight: 53 kg

DRUGS (11)
  1. CLINDAMYCIN PHOSPHATE. [Suspect]
     Active Substance: CLINDAMYCIN PHOSPHATE
     Indication: PNEUMONIA ASPIRATION
     Dosage: 1200 MG, DAILY
     Route: 041
     Dates: start: 20151112, end: 20151116
  2. SELENICA-R [Concomitant]
     Active Substance: VALPROATE SODIUM
     Dosage: 3.0 G, DAILY
     Route: 048
     Dates: start: 20151101
  3. ZOSYN [Interacting]
     Active Substance: PIPERACILLIN SODIUM\TAZOBACTAM SODIUM
     Indication: SEPSIS
  4. QUETIAPINE /01270902/ [Concomitant]
     Active Substance: QUETIAPINE FUMARATE
     Dosage: 0.8 G, DAILY
     Route: 048
     Dates: start: 20151101
  5. MEMARY [Concomitant]
     Active Substance: MEMANTINE HYDROCHLORIDE
     Dosage: 20 MG, DAILY
     Route: 048
     Dates: start: 20151101
  6. VANCOMYCIN HCL [Interacting]
     Active Substance: VANCOMYCIN HYDROCHLORIDE
     Indication: STAPHYLOCOCCAL INFECTION
     Dosage: 2 G, DAILY
     Route: 041
     Dates: start: 20151109, end: 20151116
  7. CEFTAZIDIME. [Suspect]
     Active Substance: CEFTAZIDIME
     Indication: PNEUMONIA ASPIRATION
     Dosage: 2 G, DAILY
     Route: 041
     Dates: start: 20151112, end: 20151116
  8. MIYA-BM [Concomitant]
     Active Substance: CLOSTRIDIUM BUTYRICUM SPORES STRAIN M-55
     Dosage: 6 DF, DAILY (6 TAB/DAY)
     Route: 048
     Dates: start: 20151101
  9. DONEPEZIL HYDROCHLORIDE. [Concomitant]
     Active Substance: DONEPEZIL HYDROCHLORIDE
     Dosage: 5 MG, DAILY
     Route: 048
     Dates: start: 20151101
  10. ZOSYN [Suspect]
     Active Substance: PIPERACILLIN SODIUM\TAZOBACTAM SODIUM
     Indication: PNEUMONIA ASPIRATION
     Dosage: 4.5 G, 3X/DAY
     Route: 041
     Dates: start: 20151031, end: 20151112
  11. VANCOMYCIN HCL [Interacting]
     Active Substance: VANCOMYCIN HYDROCHLORIDE
     Indication: PNEUMONIA ASPIRATION

REACTIONS (2)
  - Drug interaction [Recovered/Resolved]
  - Acute kidney injury [Recovered/Resolved]

NARRATIVE: CASE EVENT DATE: 20151109
